FAERS Safety Report 9413762 (Version 1)
Quarter: 2013Q3

REPORT INFORMATION
  Report Type: Spontaneous
  Country: NL (occurrence: NL)
  Receive Date: 20130722
  Receipt Date: 20130722
  Transmission Date: 20140515
  Serious: Yes (Other)
  Sender: FDA-Public Use
  Company Number: NL-MERCK-1307NLD006278

PATIENT
  Age: 15 Year
  Sex: Female

DRUGS (2)
  1. SINEMET CR 125 [Suspect]
     Indication: RESTLESS LEGS SYNDROME
     Dosage: 100MG LEVODOPA EN 25MG CARBIDOPA THREE TIMES DAILY
     Route: 048
     Dates: start: 2005
  2. SINEMET CR 125 [Suspect]
     Dosage: 6 TABLET A DAY

REACTIONS (3)
  - Epilepsy [Unknown]
  - Drug ineffective for unapproved indication [Not Recovered/Not Resolved]
  - Off label use [Unknown]
